FAERS Safety Report 25436044 (Version 1)
Quarter: 2025Q2

REPORT INFORMATION
  Report Type: Spontaneous
  Country: PR (occurrence: PR)
  Receive Date: 20250613
  Receipt Date: 20250613
  Transmission Date: 20250716
  Serious: No
  Sender: ABBVIE
  Company Number: PR-ABBVIE-6323696

PATIENT
  Sex: Female

DRUGS (1)
  1. SKYRIZI [Suspect]
     Active Substance: RISANKIZUMAB-RZAA
     Indication: Product used for unknown indication
     Route: 058

REACTIONS (4)
  - Arthritis [Unknown]
  - Paraesthesia [Unknown]
  - Wrong technique in product usage process [Not Recovered/Not Resolved]
  - Pain [Unknown]
